FAERS Safety Report 19610364 (Version 1)
Quarter: 2021Q3

REPORT INFORMATION
  Report Type: Spontaneous
  Country: US (occurrence: US)
  Receive Date: 20210726
  Receipt Date: 20210726
  Transmission Date: 20211014
  Serious: No
  Sender: FDA-Public Use
  Company Number: US-PFIZER INC-2020437538

PATIENT
  Age: 54 Year
  Sex: Male

DRUGS (3)
  1. INLYTA [Suspect]
     Active Substance: AXITINIB
     Dosage: 60 MG, 2X/DAY (DOSAGE STRENGTH 60 MG REQUESTED. TAKE ONE TABLET BY MOUTH EVERY 12 HOURS)
     Route: 048
  2. INLYTA [Suspect]
     Active Substance: AXITINIB
     Dosage: 5 MG
     Dates: start: 20210310, end: 20210607
  3. INLYTA [Suspect]
     Active Substance: AXITINIB
     Dosage: 5 MG
     Dates: start: 20210517

REACTIONS (2)
  - Product prescribing error [Unknown]
  - Hepatic enzyme increased [Unknown]
